FAERS Safety Report 12530214 (Version 1)
Quarter: 2016Q3

REPORT INFORMATION
  Report Type: Spontaneous
  Country: SI (occurrence: SI)
  Receive Date: 20160706
  Receipt Date: 20160706
  Transmission Date: 20161109
  Serious: Yes (Hospitalization, Other)
  Sender: FDA-Public Use
  Company Number: SI-TEVA-671599ISR

PATIENT
  Age: 60 Year
  Sex: Female

DRUGS (1)
  1. CARBOPLATIN PLIVA 50 [Suspect]
     Active Substance: CARBOPLATIN
     Indication: OVARIAN CANCER
     Dosage: 450 MILLIGRAM DAILY;
     Route: 042
     Dates: start: 20160609, end: 20160610

REACTIONS (1)
  - Infusion related reaction [Recovering/Resolving]

NARRATIVE: CASE EVENT DATE: 20160609
